FAERS Safety Report 20992696 (Version 3)
Quarter: 2022Q3

REPORT INFORMATION
  Report Type: Spontaneous
  Country: JP (occurrence: JP)
  Receive Date: 20220622
  Receipt Date: 20220701
  Transmission Date: 20221027
  Serious: Yes (Other)
  Sender: FDA-Public Use
  Company Number: JP-MLMSERVICE-20220614-3613389-1

PATIENT
  Age: 59 Year
  Sex: Female

DRUGS (6)
  1. METHYLPREDNISOLONE [Suspect]
     Active Substance: METHYLPREDNISOLONE
     Indication: Systemic scleroderma
     Dosage: 500 MG, PULSE THERAPY
  2. METHYLPREDNISOLONE [Suspect]
     Active Substance: METHYLPREDNISOLONE
     Indication: Interstitial lung disease
  3. PREDNISOLONE [Suspect]
     Active Substance: PREDNISOLONE
     Indication: Interstitial lung disease
     Dosage: 0.6 MG/KG
     Route: 048
  4. PREDNISOLONE [Suspect]
     Active Substance: PREDNISOLONE
     Indication: Systemic scleroderma
  5. PALBOCICLIB [Concomitant]
     Active Substance: PALBOCICLIB
     Indication: Breast cancer metastatic
     Dosage: UNK
  6. LETROZOLE [Concomitant]
     Active Substance: LETROZOLE
     Indication: Breast cancer metastatic
     Dosage: UNK

REACTIONS (1)
  - Pneumomediastinum [Recovered/Resolved]
